FAERS Safety Report 15437314 (Version 2)
Quarter: 2018Q4

REPORT INFORMATION
  Report Type: Spontaneous
  Country: US (occurrence: US)
  Receive Date: 20180927
  Receipt Date: 20181220
  Transmission Date: 20190204
  Serious: Yes (Life-Threatening, Hospitalization, Other)
  Sender: FDA-Public Use
  Company Number: US-AMGEN-USASP2018054008

PATIENT
  Age: 65 Year
  Sex: Male
  Weight: 83.9 kg

DRUGS (8)
  1. XGEVA [Suspect]
     Active Substance: DENOSUMAB
     Indication: BONE LESION
     Dosage: 120 MG, Q4WK
     Route: 058
     Dates: start: 20170928
  2. REMERON [Concomitant]
     Active Substance: MIRTAZAPINE
     Dosage: 15 MG, UNK
     Route: 048
     Dates: end: 20180331
  3. AXITINIB [Suspect]
     Active Substance: AXITINIB
     Indication: RENAL CELL CARCINOMA
     Dosage: 2 MG, BID
     Route: 048
     Dates: start: 20170803, end: 20180316
  4. QUESTRAN [Concomitant]
     Active Substance: CHOLESTYRAMINE
     Dosage: UNK
  5. PROTONIX [Concomitant]
     Active Substance: PANTOPRAZOLE SODIUM
     Dosage: 40 MG, QD
     Route: 048
  6. BACTRIM [Concomitant]
     Active Substance: SULFAMETHOXAZOLE\TRIMETHOPRIM
     Dosage: UNK UNK, BID (1 TAB EACH DAY)
     Route: 048
  7. HYDROCODONE [Concomitant]
     Active Substance: HYDROCODONE
     Dosage: UNK
     Dates: start: 20170905
  8. COREG [Concomitant]
     Active Substance: CARVEDILOL
     Dosage: 12.5 MG, BID
     Route: 048

REACTIONS (9)
  - Metabolic acidosis [Recovering/Resolving]
  - Hypomagnesaemia [Recovering/Resolving]
  - Diarrhoea [Unknown]
  - Decreased appetite [Recovering/Resolving]
  - Nausea [Unknown]
  - Hypocalcaemia [Recovered/Resolved]
  - Oedema peripheral [Recovering/Resolving]
  - Hyperparathyroidism secondary [Recovering/Resolving]
  - Hypersensitivity [Unknown]

NARRATIVE: CASE EVENT DATE: 20180329
